FAERS Safety Report 7678188-9 (Version None)
Quarter: 2011Q3

REPORT INFORMATION
  Report Type: 
  Country: None (occurrence: None)
  Receive Date: 20110811
  Receipt Date: 20110808
  Transmission Date: 20111222
  Serious: Yes (Other)
  Sender: FDA-Public Use
  Company Number: BR-BAYER-2011-070545

PATIENT
  Age: 29 Year
  Sex: Male

DRUGS (1)
  1. MAGNEVIST [Suspect]
     Indication: PRODUCT USED FOR UNKNOWN INDICATION
     Dosage: UNK
     Dates: start: 20110804, end: 20110804

REACTIONS (4)
  - SCLERAL HYPERAEMIA [None]
  - HYPERAEMIA [None]
  - LARYNGEAL OEDEMA [None]
  - EYELID OEDEMA [None]
